FAERS Safety Report 4467884-2 (Version None)
Quarter: 2004Q4

REPORT INFORMATION
  Report Type: 
  Country: None (occurrence: None)
  Receive Date: 20041004
  Receipt Date: 20041004
  Transmission Date: 20050328
  Serious: No
  Sender: FDA-Public Use
  Company Number: None

PATIENT
  Age: 23 Year
  Sex: Female

DRUGS (2)
  1. ABILIFY [Suspect]
     Indication: MAJOR DEPRESSION
     Dosage: 15 MG   PO
     Route: 048
     Dates: start: 20040525, end: 20040530
  2. ABILIFY [Suspect]
     Indication: SCHIZOAFFECTIVE DISORDER
     Dosage: 15 MG   PO
     Route: 048
     Dates: start: 20040525, end: 20040530

REACTIONS (6)
  - DISCOMFORT [None]
  - DYSPHAGIA [None]
  - DYSTONIA [None]
  - JAW DISORDER [None]
  - MUSCULOSKELETAL STIFFNESS [None]
  - TREMOR [None]
